FAERS Safety Report 4283176-9 (Version None)
Quarter: 2004Q1

REPORT INFORMATION
  Report Type: 
  Country: None (occurrence: None)
  Receive Date: 20040130
  Receipt Date: 20040127
  Transmission Date: 20041129
  Serious: Yes (Death)
  Sender: FDA-Public Use
  Company Number: 04-01-0046

PATIENT
  Age: 49 Year
  Sex: Female

DRUGS (3)
  1. CLOZAPINE [Suspect]
     Dosage: 150 MG BID ORAL
     Route: 048
     Dates: start: 20000801, end: 20031201
  2. OMEPRAZOLE [Concomitant]
  3. LITHIUM CARBONATE [Concomitant]

REACTIONS (1)
  - MYOCARDIAL INFARCTION [None]
